FAERS Safety Report 9854223 (Version 2)
Quarter: 2014Q1

REPORT INFORMATION
  Report Type: Spontaneous
  Country: JP (occurrence: JP)
  Receive Date: 20140130
  Receipt Date: 20140220
  Transmission Date: 20141002
  Serious: Yes (Hospitalization)
  Sender: FDA-Public Use
  Company Number: JP-PFIZER INC-2014021454

PATIENT
  Age: 40 Year
  Sex: Female
  Weight: 49.8 kg

DRUGS (2)
  1. XALATAN [Suspect]
     Indication: GLAUCOMA
     Dosage: 1 GTT, 1X/DAY (RIGHT EYE)
     Route: 047
     Dates: start: 20140116, end: 20140122
  2. UTEMERIN [Concomitant]
     Indication: THREATENED LABOUR
     Dosage: UNK
     Route: 048
     Dates: start: 20140107

REACTIONS (3)
  - Off label use [Unknown]
  - Threatened labour [Not Recovered/Not Resolved]
  - Disease progression [Not Recovered/Not Resolved]
